FAERS Safety Report 10356283 (Version 1)
Quarter: 2014Q3

REPORT INFORMATION
  Report Type: Spontaneous
  Country: US (occurrence: US)
  Receive Date: 20140801
  Receipt Date: 20140801
  Transmission Date: 20150326
  Serious: Yes (Other)
  Sender: FDA-Public Use
  Company Number: US-AMGEN-USASP2014057391

PATIENT
  Age: 73 Year
  Sex: Female

DRUGS (1)
  1. ENBREL [Suspect]
     Active Substance: ETANERCEPT
     Indication: RHEUMATOID ARTHRITIS
     Dosage: 50 MG, QWK ON MONDAYS
     Route: 065
     Dates: start: 201405

REACTIONS (8)
  - Injection site erythema [Not Recovered/Not Resolved]
  - Cataract [Recovered/Resolved]
  - Finger deformity [Not Recovered/Not Resolved]
  - Injection site extravasation [Recovered/Resolved]
  - Injection site reaction [Not Recovered/Not Resolved]
  - Skin disorder [Not Recovered/Not Resolved]
  - Nervousness [Recovered/Resolved]
  - Hand deformity [Not Recovered/Not Resolved]

NARRATIVE: CASE EVENT DATE: 2014
